FAERS Safety Report 9893090 (Version 2)
Quarter: 2014Q2

REPORT INFORMATION
  Report Type: Spontaneous
  Country: US (occurrence: US)
  Receive Date: 20140213
  Receipt Date: 20140401
  Transmission Date: 20141212
  Serious: Yes (Other)
  Sender: FDA-Public Use
  Company Number: US-BRISTOL-MYERS SQUIBB COMPANY-20169280

PATIENT
  Age: 57 Year
  Sex: Female

DRUGS (2)
  1. ABILIFY [Suspect]
     Dosage: AT BEDTIME.
     Route: 048
     Dates: start: 20131015, end: 20131224
  2. ABILIFY MAINTENA INJECTION [Suspect]
     Indication: SCHIZOPHRENIA
     Route: 030
     Dates: start: 20131211, end: 20140109

REACTIONS (3)
  - Delusion [Unknown]
  - Paranoia [Unknown]
  - Anxiety [Unknown]
